FAERS Safety Report 16026042 (Version 5)
Quarter: 2022Q1

REPORT INFORMATION
  Report Type: Spontaneous
  Country: DE (occurrence: DE)
  Receive Date: 20190302
  Receipt Date: 20220216
  Transmission Date: 20220423
  Serious: Yes (Other)
  Sender: FDA-Public Use
  Company Number: DE-AUROBINDO-AUR-APL-2019-011137

PATIENT
  Age: 79 Year
  Sex: Male

DRUGS (9)
  1. RAMIPRIL [Suspect]
     Active Substance: RAMIPRIL
     Indication: Hypertension
     Dosage: UNK
     Route: 048
  2. TAMSULOSIN [Suspect]
     Active Substance: TAMSULOSIN
     Indication: Benign prostatic hyperplasia
     Dosage: UNK
     Route: 048
  3. FENTANYL [Suspect]
     Active Substance: FENTANYL
     Indication: Knee operation
     Dosage: 100 MICROGRAM
     Route: 062
     Dates: start: 2009
  4. NITRAZEPAM [Suspect]
     Active Substance: NITRAZEPAM
     Indication: Insomnia
     Dosage: 0.5 DOSAGE FORM
     Route: 048
  5. ASPIRIN [Concomitant]
     Active Substance: ASPIRIN
     Indication: Product used for unknown indication
     Dosage: UNK, 1
     Route: 048
  6. MAGNESIUM [Concomitant]
     Active Substance: MAGNESIUM
     Indication: Product used for unknown indication
     Dosage: UNK, 2
     Route: 048
  7. OMEPRAZOLE [Concomitant]
     Active Substance: OMEPRAZOLE
     Indication: Gastric pH decreased
     Dosage: UNK, 1, 3 DAY, EVERY THREE DAYS 1 TABLET
     Route: 048
  8. METAMIZOLE [Concomitant]
     Active Substance: METAMIZOLE
     Indication: Pain
     Dosage: UNK, 2
     Route: 048
  9. GLYCOPYRROLATE [Concomitant]
     Active Substance: GLYCOPYRROLATE
     Indication: Bronchitis
     Dosage: UNK
     Route: 055

REACTIONS (5)
  - Fatigue [Unknown]
  - Dyspnoea [Unknown]
  - Feeling cold [Unknown]
  - Memory impairment [Unknown]
  - Drug dependence [Unknown]
